FAERS Safety Report 5176517-1 (Version None)
Quarter: 2006Q4

REPORT INFORMATION
  Report Type: 
  Country: None (occurrence: None)
  Receive Date: 20061215
  Receipt Date: 20060127
  Transmission Date: 20070319
  Serious: Yes (Disabling)
  Sender: FDA-Public Use
  Company Number: US-ROCHE-434151

PATIENT
  Age: 19 Year
  Sex: Male
  Weight: 140 kg

DRUGS (2)
  1. ACCUTANE [Suspect]
     Indication: ACNE
     Route: 048
     Dates: start: 20030116, end: 20030228
  2. ACCUTANE [Suspect]
     Route: 048
     Dates: start: 20030228

REACTIONS (40)
  - ANXIETY [None]
  - ARTHRITIS [None]
  - BONE DISORDER [None]
  - COLONIC POLYP [None]
  - CROHN'S DISEASE [None]
  - DEPRESSION [None]
  - DISTRACTIBILITY [None]
  - DISTURBANCE IN ATTENTION [None]
  - DIZZINESS [None]
  - DYSTONIA [None]
  - EPSTEIN-BARR VIRUS ANTIBODY POSITIVE [None]
  - FATIGUE [None]
  - FEELING OF DESPAIR [None]
  - FRACTURE [None]
  - FRUSTRATION [None]
  - FUNGUS SEROLOGY TEST POSITIVE [None]
  - GASTROINTESTINAL INJURY [None]
  - GASTROOESOPHAGEAL REFLUX DISEASE [None]
  - HAEMATOCHEZIA [None]
  - HEADACHE [None]
  - INFLAMMATORY BOWEL DISEASE [None]
  - INSOMNIA [None]
  - INTESTINAL POLYP [None]
  - IRRITABILITY [None]
  - NYSTAGMUS [None]
  - OBSESSIVE-COMPULSIVE DISORDER [None]
  - OCULOMOTOR STUDY ABNORMAL [None]
  - PANIC ATTACK [None]
  - PHARYNGITIS [None]
  - PHOBIA [None]
  - PILONIDAL CYST [None]
  - POST-TRAUMATIC STRESS DISORDER [None]
  - RESTLESSNESS [None]
  - ROAD TRAFFIC ACCIDENT [None]
  - SELF ESTEEM DECREASED [None]
  - SOCIAL PHOBIA [None]
  - STRESS [None]
  - TEMPOROMANDIBULAR JOINT SYNDROME [None]
  - VERTIGO [None]
  - VESTIBULAR DISORDER [None]
